FAERS Safety Report 17818859 (Version 1)
Quarter: 2020Q2

REPORT INFORMATION
  Report Type: Spontaneous
  Country: US (occurrence: US)
  Receive Date: 20200522
  Receipt Date: 20200522
  Transmission Date: 20200714
  Serious: No
  Sender: FDA-Public Use
  Company Number: US-009507513-2005USA006762

PATIENT
  Age: 16 Year

DRUGS (4)
  1. TEMODAR [Suspect]
     Active Substance: TEMOZOLOMIDE
     Indication: HEPATOCELLULAR CARCINOMA
     Route: 048
  2. IRINOTECAN HYDROCHLORIDE. [Concomitant]
     Active Substance: IRINOTECAN HYDROCHLORIDE
     Indication: HEPATOCELLULAR CARCINOMA
  3. BEVACIZUMAB. [Concomitant]
     Active Substance: BEVACIZUMAB
     Indication: HEPATOCELLULAR CARCINOMA
  4. VINCRISTINE [Concomitant]
     Active Substance: VINCRISTINE
     Indication: HEPATOCELLULAR CARCINOMA

REACTIONS (1)
  - Product use in unapproved indication [Unknown]
